FAERS Safety Report 17600307 (Version 4)
Quarter: 2021Q3

REPORT INFORMATION
  Report Type: Spontaneous
  Country: CA (occurrence: CA)
  Receive Date: 20200330
  Receipt Date: 20210913
  Transmission Date: 20211014
  Serious: Yes (Other)
  Sender: FDA-Public Use
  Company Number: CA-SAMSUNG BIOEPIS-SB-2020-10269

PATIENT
  Age: 66 Year
  Sex: Male
  Weight: 80 kg

DRUGS (9)
  1. REMERON [Concomitant]
     Active Substance: MIRTAZAPINE
     Indication: PRODUCT USED FOR UNKNOWN INDICATION
     Dosage: UNKNOWN
     Route: 065
  2. INFLIXIMAB [Suspect]
     Active Substance: INFLIXIMAB
     Indication: CROHN^S DISEASE
     Route: 042
  3. FLAGYL [Concomitant]
     Active Substance: METRONIDAZOLE\METRONIDAZOLE HYDROCHLORIDE
     Indication: PRODUCT USED FOR UNKNOWN INDICATION
     Dosage: UNKNOWN
     Route: 065
  4. TYLENOL [Concomitant]
     Active Substance: ACETAMINOPHEN
     Indication: PRODUCT USED FOR UNKNOWN INDICATION
     Route: 048
  5. BENADRYL [Concomitant]
     Active Substance: DIPHENHYDRAMINE HYDROCHLORIDE
     Indication: PREMEDICATION
     Route: 042
  6. REMERON [Concomitant]
     Active Substance: MIRTAZAPINE
     Dosage: UNKNOWN
     Route: 065
  7. ACETAMINOPHEN. [Concomitant]
     Active Substance: ACETAMINOPHEN
     Indication: PREMEDICATION
     Route: 048
  8. TYLENOL [Concomitant]
     Active Substance: ACETAMINOPHEN
     Route: 065
  9. BENADRYL [Concomitant]
     Active Substance: DIPHENHYDRAMINE HYDROCHLORIDE
     Indication: PRODUCT USED FOR UNKNOWN INDICATION
     Route: 065

REACTIONS (13)
  - Enteritis [Recovered/Resolved]
  - Spinal osteoarthritis [Recovered/Resolved]
  - Chest discomfort [Unknown]
  - Blood pressure fluctuation [Unknown]
  - Neoplasm malignant [Unknown]
  - Pelvic discomfort [Recovered/Resolved]
  - Abdominal pain upper [Unknown]
  - Condition aggravated [Unknown]
  - Pyrexia [Unknown]
  - Anxiety disorder [Recovered/Resolved]
  - Blood pressure increased [Unknown]
  - Heart rate decreased [Unknown]
  - Arthralgia [Unknown]
